FAERS Safety Report 6651721-1 (Version None)
Quarter: 2010Q1

REPORT INFORMATION
  Report Type: 
  Country: None (occurrence: None)
  Receive Date: 20100325
  Receipt Date: 20100316
  Transmission Date: 20100710
  Serious: Yes (Hospitalization)
  Sender: FDA-Public Use
  Company Number: US-BRISTOL-MYERS SQUIBB COMPANY-15022254

PATIENT
  Age: 67 Year
  Sex: Male
  Weight: 94 kg

DRUGS (9)
  1. CARBOPLATIN [Suspect]
     Indication: NON-SMALL CELL LUNG CANCER
     Dosage: LAST INFUSION:05MAR10;256MG IVPB IN 50ML NS IVPB OVER 30MIN
     Route: 042
     Dates: start: 20100125
  2. TAXOL [Suspect]
     Indication: NON-SMALL CELL LUNG CANCER
     Dosage: LAST INFU:05MAR10;45MG/M2=98MG
     Route: 042
     Dates: start: 20100125
  3. RADIATION THERAPY [Suspect]
     Indication: NON-SMALL CELL LUNG CANCER
     Dosage: 1 DF = 60 GY TO CHEST (3D) OVER 30 FRACTIONS
     Dates: start: 20100125, end: 20100310
  4. ASPIRIN [Concomitant]
  5. FLOMAX [Concomitant]
  6. HYDROCODONE [Concomitant]
  7. KETOCONAZOLE [Concomitant]
  8. METFORMIN HCL [Concomitant]
  9. NEXIUM [Concomitant]

REACTIONS (1)
  - OESOPHAGITIS [None]
